FAERS Safety Report 6366593-2 (Version None)
Quarter: 2009Q3

REPORT INFORMATION
  Report Type: 
  Country: None (occurrence: None)
  Receive Date: 20090921
  Receipt Date: 20090917
  Transmission Date: 20100115
  Serious: Yes (Disabling)
  Sender: FDA-Public Use
  Company Number: MX-ABBOTT-09P-107-0597122-00

PATIENT
  Sex: Male
  Weight: 78 kg

DRUGS (1)
  1. KALETRA [Suspect]
     Indication: PROPHYLAXIS
     Dosage: 200/50 MG
     Route: 048

REACTIONS (3)
  - CONFUSIONAL STATE [None]
  - GASTRODUODENITIS [None]
  - INFLAMMATION [None]
